FAERS Safety Report 9669946 (Version 1)
Quarter: 2013Q4

REPORT INFORMATION
  Report Type: Spontaneous
  Country: US (occurrence: US)
  Receive Date: 20131105
  Receipt Date: 20131105
  Transmission Date: 20140711
  Serious: Yes (Other)
  Sender: FDA-Public Use
  Company Number: US-GLAXOSMITHKLINE-A1047726A

PATIENT
  Sex: Male

DRUGS (3)
  1. PAROXETINE [Suspect]
     Indication: DEPRESSION
     Route: 048
  2. PAXIL [Suspect]
     Indication: PRODUCT USED FOR UNKNOWN INDICATION
     Dates: start: 2000
  3. NO CONCURRENT MEDICATION [Concomitant]

REACTIONS (11)
  - Abasia [Not Recovered/Not Resolved]
  - Drug eruption [Not Recovered/Not Resolved]
  - Dizziness [Not Recovered/Not Resolved]
  - Nervous system disorder [Not Recovered/Not Resolved]
  - Tremor [Not Recovered/Not Resolved]
  - Insomnia [Not Recovered/Not Resolved]
  - Anxiety [Not Recovered/Not Resolved]
  - Drug administration error [Unknown]
  - Hypersensitivity [Unknown]
  - Urticaria [Unknown]
  - Gait disturbance [Unknown]
